FAERS Safety Report 4468874-6 (Version None)
Quarter: 2004Q4

REPORT INFORMATION
  Report Type: 
  Country: None (occurrence: None)
  Receive Date: 20041008
  Receipt Date: 20040930
  Transmission Date: 20050328
  Serious: Yes (Hospitalization)
  Sender: FDA-Public Use
  Company Number: US-JNJFOC-20041000356

PATIENT
  Sex: Female
  Weight: 56.7 kg

DRUGS (11)
  1. INFLIXIMAB [Suspect]
     Route: 042
  2. INFLIXIMAB [Suspect]
     Indication: RHEUMATOID ARTHRITIS
     Route: 042
  3. HUMIRA [Concomitant]
  4. PREDNISONE [Concomitant]
  5. KLONOPIN [Concomitant]
  6. DUONEB [Concomitant]
     Dosage: 3 ML 2-4 TIMES DAILY
  7. ALBUTEROL [Concomitant]
  8. COMBIVENT [Concomitant]
  9. COMBIVENT [Concomitant]
  10. OXYGEN [Concomitant]
     Dosage: 2-3 L AS NEEDED
  11. CALCIUM [Concomitant]

REACTIONS (2)
  - CHRONIC OBSTRUCTIVE AIRWAYS DISEASE EXACERBATED [None]
  - COMPRESSION FRACTURE [None]
